FAERS Safety Report 25289649 (Version 3)
Quarter: 2025Q2

REPORT INFORMATION
  Report Type: Report from Study
  Country: US (occurrence: US)
  Receive Date: 20250509
  Receipt Date: 20250524
  Transmission Date: 20250716
  Serious: Yes (Hospitalization, Other)
  Sender: ABBVIE
  Company Number: US-ABBVIE-6268205

PATIENT
  Age: 61 Year
  Sex: Female
  Weight: 83.46 kg

DRUGS (2)
  1. CREON [Suspect]
     Active Substance: PANCRELIPASE AMYLASE\PANCRELIPASE LIPASE\PANCRELIPASE PROTEASE
     Indication: Pancreatic failure
     Route: 048
     Dates: start: 2015, end: 202504
  2. GLIPIZIDE [Concomitant]
     Active Substance: GLIPIZIDE
     Indication: Type 2 diabetes mellitus

REACTIONS (7)
  - Osteoarthritis [Not Recovered/Not Resolved]
  - Type 2 diabetes mellitus [Unknown]
  - Urinary incontinence [Recovered/Resolved]
  - Diarrhoea [Not Recovered/Not Resolved]
  - Cellulitis [Recovered/Resolved]
  - Pain [Unknown]
  - Fluid retention [Recovered/Resolved]

NARRATIVE: CASE EVENT DATE: 20200101
